FAERS Safety Report 13580180 (Version 1)
Quarter: 2017Q2

REPORT INFORMATION
  Report Type: Spontaneous
  Country: US (occurrence: US)
  Receive Date: 20170524
  Receipt Date: 20170524
  Transmission Date: 20170830
  Serious: Yes (Hospitalization)
  Sender: FDA-Public Use
  Company Number: None

PATIENT
  Age: 40 Year
  Sex: Female

DRUGS (1)
  1. RIBAVIRIN 200MG UNKNOWN [Suspect]
     Active Substance: RIBAVIRIN
     Dosage: 200MG 2 IN AM AND 3 IN P BY MOUTH
     Route: 048
     Dates: start: 20161219

REACTIONS (4)
  - Anxiety [None]
  - Fatigue [None]
  - Irritability [None]
  - Eating disorder [None]

NARRATIVE: CASE EVENT DATE: 20170328
